FAERS Safety Report 5317702-5 (Version None)
Quarter: 2007Q2

REPORT INFORMATION
  Report Type: 
  Country: None (occurrence: None)
  Receive Date: 20070507
  Receipt Date: 20070427
  Transmission Date: 20071010
  Serious: Yes (Death, Other)
  Sender: FDA-Public Use
  Company Number: US-PURDUE-USA_2007_0026712

PATIENT
  Age: 31 Year
  Sex: Female
  Weight: 59 kg

DRUGS (3)
  1. OXYCODONE HCL [Suspect]
     Indication: DRUG ABUSER
     Dosage: UNK, UNK
  2. COCAINE [Suspect]
     Indication: DRUG ABUSER
     Dosage: UNK, UNK
  3. ALPRAZOLAM [Suspect]
     Indication: DRUG ABUSER
     Dosage: UNK, UNK

REACTIONS (3)
  - HEAD INJURY [None]
  - ROAD TRAFFIC ACCIDENT [None]
  - SUBSTANCE ABUSE [None]
